FAERS Safety Report 6639292-7 (Version None)
Quarter: 2010Q1

REPORT INFORMATION
  Report Type: 
  Country: None (occurrence: None)
  Receive Date: 20100317
  Receipt Date: 20100310
  Transmission Date: 20100710
  Serious: Yes (Hospitalization, Other)
  Sender: FDA-Public Use
  Company Number: DE-AMGEN-QUU398577

PATIENT
  Age: 29 Year
  Sex: Male

DRUGS (2)
  1. NPLATE [Suspect]
     Indication: IDIOPATHIC THROMBOCYTOPENIC PURPURA
  2. CORTISONE [Concomitant]

REACTIONS (5)
  - ABDOMINAL PAIN [None]
  - ASTHENIA [None]
  - CHOLELITHIASIS [None]
  - INFECTION [None]
  - PANCREATITIS [None]
